FAERS Safety Report 4907028-3 (Version None)
Quarter: 2006Q1

REPORT INFORMATION
  Report Type: 
  Country: None (occurrence: None)
  Receive Date: 20060207
  Receipt Date: 20060125
  Transmission Date: 20060701
  Serious: Yes (Death)
  Sender: FDA-Public Use
  Company Number: US200601004234

PATIENT
  Age: 59 Year
  Sex: Female

DRUGS (1)
  1. XIGRIS (DROTRECOGIN ALFA (ACTIVATED)) VIAL [Suspect]
     Indication: SEPSIS
     Dosage: 24 ?G/KG/HR, INTRAVENOUS
     Route: 042
     Dates: start: 20060101, end: 20060101

REACTIONS (1)
  - SEPSIS [None]
